FAERS Safety Report 5156357-X (Version None)
Quarter: 2006Q4

REPORT INFORMATION
  Report Type: 
  Country: None (occurrence: None)
  Receive Date: 20061122
  Receipt Date: 20060914
  Transmission Date: 20070319
  Serious: Yes (Other)
  Sender: FDA-Public Use
  Company Number: US-SANOFI-SYNTHELABO-A03200605725

PATIENT
  Age: 55 Year
  Sex: Female

DRUGS (15)
  1. AMBIEN [Suspect]
     Indication: INSOMNIA
     Route: 048
     Dates: start: 20060901, end: 20061001
  2. ECONOPRED PLUS [Concomitant]
     Dosage: UNK
     Route: 047
  3. VIGAMOX [Concomitant]
     Dosage: UNK
     Route: 047
  4. CENTRUM [Concomitant]
     Dosage: UNK
     Route: 065
  5. ASPIRIN [Concomitant]
     Route: 065
  6. FLONASE [Concomitant]
     Dosage: UNK
     Route: 065
  7. CRESTOR [Concomitant]
     Dosage: UNK
     Route: 065
  8. MECLIZINE [Concomitant]
     Dosage: UNK
     Route: 065
  9. LEXAPRO [Concomitant]
     Dosage: UNK
     Route: 065
  10. HYDROCHLOROTHIAZIDE [Concomitant]
     Dosage: UNK
     Route: 065
  11. LISINOPRIL [Concomitant]
     Dosage: UNK
     Route: 065
  12. LEVOTHYROXINE SODIUM [Concomitant]
     Dosage: UNK
     Route: 065
  13. FENTANYL [Concomitant]
     Dosage: UNK
     Route: 065
     Dates: start: 20060911
  14. VERSED [Concomitant]
     Dosage: UNK
     Route: 065
     Dates: start: 20060911
  15. SUSTAIN [Concomitant]
     Dosage: UNK
     Route: 047

REACTIONS (5)
  - ANGIONEUROTIC OEDEMA [None]
  - CATARACT OPERATION [None]
  - LIP SWELLING [None]
  - PARAESTHESIA ORAL [None]
  - URTICARIA [None]
